FAERS Safety Report 25468910 (Version 1)
Quarter: 2025Q2

REPORT INFORMATION
  Report Type: Spontaneous
  Country: CN (occurrence: CN)
  Receive Date: 20250623
  Receipt Date: 20250623
  Transmission Date: 20250716
  Serious: Yes (Other)
  Sender: TAIHO ONCOLOGY INC
  Company Number: CN-TAIHOP-2025-006515

PATIENT
  Age: 43 Year
  Sex: Male

DRUGS (3)
  1. TIPIRACIL HYDROCHLORIDE\TRIFLURIDINE [Suspect]
     Active Substance: TIPIRACIL HYDROCHLORIDE\TRIFLURIDINE
     Indication: Gastrointestinal carcinoma
     Dosage: FOR 5 DAYS
     Route: 048
     Dates: start: 20250610
  2. TIPIRACIL HYDROCHLORIDE\TRIFLURIDINE [Suspect]
     Active Substance: TIPIRACIL HYDROCHLORIDE\TRIFLURIDINE
     Route: 048
     Dates: start: 20250618
  3. AVATROMBOPAG [Concomitant]
     Active Substance: AVATROMBOPAG
     Indication: Gastrointestinal carcinoma
     Dates: start: 20250608, end: 20250618

REACTIONS (1)
  - Platelet count increased [Unknown]

NARRATIVE: CASE EVENT DATE: 20250618
